FAERS Safety Report 16933256 (Version 6)
Quarter: 2025Q3

REPORT INFORMATION
  Report Type: Spontaneous
  Country: EU (occurrence: EU)
  Receive Date: 20191018
  Receipt Date: 20250709
  Transmission Date: 20251021
  Serious: Yes (Other)
  Sender: AUROBINDO
  Company Number: EU-AUROBINDO-AUR-APL-2019-067577

PATIENT
  Age: 39 Year
  Sex: Female
  Weight: 55 kg

DRUGS (15)
  1. VORICONAZOLE [Suspect]
     Active Substance: VORICONAZOLE
     Indication: Aspergillus infection
     Dosage: 400 MILLIGRAM, ONCE A DAY 200 MG, BID
     Route: 048
  2. VORICONAZOLE [Suspect]
     Active Substance: VORICONAZOLE
     Indication: Cerebral aspergillosis
     Dosage: 650 MILLIGRAM, ONCE A DAY,650 MG PER DAY DIVIDED INTO 2 INTAKES
     Route: 065
  3. VORICONAZOLE [Suspect]
     Active Substance: VORICONAZOLE
     Dosage: 300 MILLIGRAM, ONCE A DAY
     Route: 065
  4. VORICONAZOLE [Suspect]
     Active Substance: VORICONAZOLE
     Route: 048
  5. VORICONAZOLE [Suspect]
     Active Substance: VORICONAZOLE
     Route: 042
  6. VORICONAZOLE [Suspect]
     Active Substance: VORICONAZOLE
     Dosage: 1200 MILLIGRAM, ONCE A DAY 400 MG, TID
     Route: 065
  7. VORICONAZOLE [Suspect]
     Active Substance: VORICONAZOLE
     Route: 065
  8. VORICONAZOLE [Suspect]
     Active Substance: VORICONAZOLE
     Dosage: 600 MILLIGRAM, ONCE A DAY 300 MG, BID
     Route: 048
  9. BENDAMUSTINE HYDROCHLORIDE [Suspect]
     Active Substance: BENDAMUSTINE HYDROCHLORIDE
     Indication: Chronic lymphocytic leukaemia
     Route: 042
  10. AMPHOTERICIN B [Suspect]
     Active Substance: AMPHOTERICIN B
     Indication: Cerebral aspergillosis
     Route: 065
  11. AMPHOTERICIN B [Suspect]
     Active Substance: AMPHOTERICIN B
     Indication: Aspergillus infection
  12. CASPOFUNGIN [Concomitant]
     Active Substance: CASPOFUNGIN
     Indication: Cerebral aspergillosis
     Dosage: 150 MILLIGRAM, ONCE A DAY
     Route: 065
  13. CASPOFUNGIN [Concomitant]
     Active Substance: CASPOFUNGIN
     Indication: Aspergillus infection
  14. BENDAMUSTINE [Concomitant]
     Active Substance: BENDAMUSTINE
     Indication: Chronic lymphocytic leukaemia
     Route: 042
  15. BENDAMUSTINE [Concomitant]
     Active Substance: BENDAMUSTINE
     Indication: Chronic myeloid leukaemia

REACTIONS (9)
  - Generalised tonic-clonic seizure [Unknown]
  - Cholestasis [Unknown]
  - Neutropenia [Unknown]
  - Cerebral aspergillosis [Recovered/Resolved]
  - Drug level below therapeutic [Unknown]
  - Drug level decreased [Not Recovered/Not Resolved]
  - Treatment failure [Recovered/Resolved]
  - Off label use [Unknown]
  - Prescribed overdose [Unknown]
